FAERS Safety Report 6032682-5 (Version None)
Quarter: 2009Q1

REPORT INFORMATION
  Report Type: 
  Country: None (occurrence: None)
  Receive Date: 20090107
  Receipt Date: 20090107
  Transmission Date: 20090719
  Serious: Yes (Hospitalization)
  Sender: FDA-Public Use
  Company Number: None

PATIENT
  Sex: Female
  Weight: 90.6 kg

DRUGS (7)
  1. BEVACIZUMAB [Suspect]
     Indication: GLIOBLASTOMA MULTIFORME
     Dosage: 891MG Q2 WKS IV
     Route: 042
     Dates: start: 20080613
  2. IRINOTECAN [Suspect]
     Indication: GLIOBLASTOMA MULTIFORME
     Dosage: 144MG Q2 WKS IV
     Route: 042
     Dates: start: 20080613
  3. TEMODAR [Suspect]
     Dosage: 380MG QD/5D OF 28D CY PO
     Route: 048
     Dates: start: 20080613
  4. KEPPRA [Concomitant]
  5. NEXIUM [Concomitant]
  6. ZOFRAN [Concomitant]
  7. POTASSIUM CHLORIDE [Concomitant]

REACTIONS (1)
  - CONVULSION [None]
